FAERS Safety Report 8595913-3 (Version None)
Quarter: 2012Q3

REPORT INFORMATION
  Report Type: 
  Country: None (occurrence: None)
  Receive Date: 20120815
  Receipt Date: 19900202
  Transmission Date: 20120928
  Serious: Yes (Hospitalization)
  Sender: FDA-Public Use
  Company Number: US-ROCHE-1100439

PATIENT
  Age: 68 Year
  Sex: Male

DRUGS (8)
  1. LIDOCAINE [Concomitant]
     Route: 040
  2. ACTIVASE [Suspect]
     Dosage: 20 CC/HOUR
  3. HEPARIN [Concomitant]
     Dosage: 5000 UNITS
     Route: 040
  4. HEPARIN [Concomitant]
     Dosage: 40 CC/HOUR
  5. LIDOCAINE [Concomitant]
     Route: 040
  6. ACTIVASE [Suspect]
     Indication: ACUTE MYOCARDIAL INFARCTION
     Dosage: 10 CC SLOW IUP
  7. ACTIVASE [Suspect]
     Dosage: 50 CC/HOUR
  8. NITROGLYCERIN [Concomitant]
     Dosage: 20 MEQ/MIN

REACTIONS (4)
  - PALLOR [None]
  - ERUCTATION [None]
  - CHEST DISCOMFORT [None]
  - RESTLESSNESS [None]
